FAERS Safety Report 9217556 (Version 1)
Quarter: 2013Q2

REPORT INFORMATION
  Report Type: Spontaneous
  Country: US (occurrence: US)
  Receive Date: 20130408
  Receipt Date: 20130408
  Transmission Date: 20140414
  Serious: Yes (Other)
  Sender: FDA-Public Use
  Company Number: US-PFIZER INC-2013107208

PATIENT
  Age: 56 Year
  Sex: Female
  Weight: 79.37 kg

DRUGS (8)
  1. LYRICA [Suspect]
     Indication: PAIN
     Dosage: UNK, 1X/DAY
  2. LYRICA [Suspect]
     Indication: INTERVERTEBRAL DISC DEGENERATION
  3. LYRICA [Suspect]
     Indication: INTERVERTEBRAL DISC PROTRUSION
  4. LYRICA [Suspect]
     Indication: SCIATICA
  5. HYDROCODONE [Suspect]
     Indication: PAIN
     Dosage: UNK
  6. HYDROCODONE [Suspect]
     Indication: INTERVERTEBRAL DISC DEGENERATION
  7. HYDROCODONE [Suspect]
     Indication: INTERVERTEBRAL DISC PROTRUSION
  8. HYDROCODONE [Suspect]
     Indication: SCIATIC HERNIA

REACTIONS (7)
  - Vertigo [Recovered/Resolved]
  - Visual impairment [Unknown]
  - Blood glucose increased [Unknown]
  - Activities of daily living impaired [Unknown]
  - Abnormal behaviour [Unknown]
  - Vomiting [Unknown]
  - Drug ineffective [Unknown]
